FAERS Safety Report 5342218-X (Version None)
Quarter: 2007Q2

REPORT INFORMATION
  Report Type: 
  Country: None (occurrence: None)
  Receive Date: 20070601
  Receipt Date: 20070523
  Transmission Date: 20071010
  Serious: Yes (Other)
  Sender: FDA-Public Use
  Company Number: GB-ROCHE-499786

PATIENT
  Sex: Male

DRUGS (3)
  1. XELODA [Suspect]
     Route: 065
  2. CISPLATIN [Concomitant]
  3. EPIRUBICIN [Concomitant]

REACTIONS (3)
  - ILIAC ARTERY STENOSIS [None]
  - PERIPHERAL ISCHAEMIA [None]
  - VASOSPASM [None]
